FAERS Safety Report 4842674-7 (Version None)
Quarter: 2005Q4

REPORT INFORMATION
  Report Type: 
  Country: None (occurrence: None)
  Receive Date: 20051129
  Receipt Date: 20051115
  Transmission Date: 20060501
  Serious: Yes (Other)
  Sender: FDA-Public Use
  Company Number: USA0508106124

PATIENT
  Sex: Female

DRUGS (4)
  1. FORTEO [Suspect]
     Dosage: 20 UG, DAILY (1/D), SUBCUTANEOUS
     Route: 058
     Dates: start: 20030101, end: 20050101
  2. FORTEO PEN, 250MCG/ML(3ML(3ML) (FORTEO PEN 250MCG/ML(3ML)) PEN, DISPOS [Concomitant]
  3. LIPITOR [Concomitant]
  4. ACTONEL                                 /USA/ (RISEDRONATE SODIUM) [Concomitant]

REACTIONS (4)
  - CATARACT [None]
  - KERATOPATHY [None]
  - MACULAR DEGENERATION [None]
  - MACULAR HOLE [None]
